FAERS Safety Report 23813561 (Version 3)
Quarter: 2024Q3

REPORT INFORMATION
  Report Type: Spontaneous
  Country: PL (occurrence: PL)
  Receive Date: 20240503
  Receipt Date: 20240913
  Transmission Date: 20241017
  Serious: Yes (Other)
  Sender: ASTELLAS
  Company Number: PL-GILEAD-2024-0670920

PATIENT
  Age: 65 Year
  Sex: Male

DRUGS (8)
  1. AMBISOME [Interacting]
     Active Substance: AMPHOTERICIN B
     Indication: Pneumonia fungal
     Dosage: 200 MG, UNKNOWN FREQ. (3 MG/KG)
     Route: 042
     Dates: start: 20230412
  2. AMBISOME [Interacting]
     Active Substance: AMPHOTERICIN B
     Dosage: UNK UNK, UNKNOWN FREQ.
     Route: 065
     Dates: start: 20230525
  3. AZACITIDINE [Interacting]
     Active Substance: AZACITIDINE
     Indication: Product used for unknown indication
     Dosage: UNK UNK, UNKNOWN FREQ.
     Route: 065
     Dates: start: 20230419
  4. CASPOFUNGIN [Concomitant]
     Active Substance: CASPOFUNGIN
     Indication: Product used for unknown indication
     Dosage: UNK UNK, UNKNOWN FREQ.
     Route: 065
     Dates: start: 20230428
  5. CEFTRIAXONE [Concomitant]
     Active Substance: CEFTRIAXONE\CEFTRIAXONE SODIUM
     Indication: Product used for unknown indication
     Dosage: UNK UNK, UNKNOWN FREQ.
     Route: 065
  6. COTRIMOXAZOLE [Concomitant]
     Active Substance: SULFAMETHOXAZOLE\TRIMETHOPRIM
     Indication: Product used for unknown indication
     Dosage: UNK UNK, UNKNOWN FREQ.
     Route: 065
  7. VANCOMYCIN [Concomitant]
     Active Substance: VANCOMYCIN
     Indication: Product used for unknown indication
     Dosage: UNK UNK, UNKNOWN FREQ.
     Route: 065
  8. VENETOCLAX [Interacting]
     Active Substance: VENETOCLAX

REACTIONS (3)
  - Diarrhoea haemorrhagic [Recovered/Resolved]
  - Drug interaction [Recovered/Resolved]
  - Acute myeloid leukaemia (in remission) [Unknown]

NARRATIVE: CASE EVENT DATE: 20230412
